FAERS Safety Report 22059409 (Version 1)
Quarter: 2023Q1

REPORT INFORMATION
  Report Type: Spontaneous
  Country: US (occurrence: None)
  Receive Date: 20230302
  Receipt Date: 20230302
  Transmission Date: 20230418
  Serious: No
  Sender: FDA-Public Use
  Company Number: None

PATIENT
  Age: 88 Year
  Sex: Male
  Weight: 69.9 kg

DRUGS (34)
  1. TEMOZOLOMIDE [Suspect]
     Active Substance: TEMOZOLOMIDE
     Indication: Brain neoplasm malignant
     Dosage: FREQUENCY : DAILY;?
     Route: 048
  2. ALBUTEROL SULFATE [Concomitant]
  3. ATORVASTATIN CALCIUM [Concomitant]
  4. BACTRIM DS [Concomitant]
  5. BUTALBITAL-APAP-CAFFEINE [Concomitant]
  6. CALTRATE-D [Concomitant]
  7. CHLORHEXIDINE GLUCONATE [Concomitant]
  8. DECADRON [Concomitant]
  9. DEXAMETHASONE [Concomitant]
  10. DULERA INH [Concomitant]
  11. DUTASTERIDE [Concomitant]
  12. FERROUS SULFATE [Concomitant]
  13. FLONASE ALLERGY [Concomitant]
  14. FLUCONAZOLE [Concomitant]
  15. FLUOXETINE [Concomitant]
  16. HYDROCODONE-ACETAMINOPHEN [Concomitant]
  17. KEPPRA [Concomitant]
  18. LIDODERM [Concomitant]
  19. LIPITOR [Concomitant]
  20. LOSARTAN POTASSIUM [Concomitant]
  21. MIRALAX [Concomitant]
  22. MUCINEX ALLERGY [Concomitant]
  23. MULTIVITAMINS [Concomitant]
  24. NORCO [Concomitant]
  25. OXYCODONE [Concomitant]
  26. PROCHLORPERAZINE [Concomitant]
  27. PROTONIX [Concomitant]
  28. SENOKOT S [Concomitant]
  29. SINGULAIR [Concomitant]
  30. SPIRIVA RESPIMAT INHALATION [Concomitant]
  31. TYLENOL [Concomitant]
  32. VENTOLIN [Concomitant]
  33. VISTARIL [Concomitant]
  34. VITAMIN C [Concomitant]

REACTIONS (2)
  - Seizure [None]
  - Therapy interrupted [None]
